APPROVED DRUG PRODUCT: FLUPHENAZINE HYDROCHLORIDE
Active Ingredient: FLUPHENAZINE HYDROCHLORIDE
Strength: 2.5MG/5ML
Dosage Form/Route: ELIXIR;ORAL
Application: A081310 | Product #001
Applicant: ANI PHARMACEUTICALS INC
Approved: Apr 29, 1993 | RLD: No | RS: No | Type: DISCN